FAERS Safety Report 7010403-7 (Version None)
Quarter: 2010Q3

REPORT INFORMATION
  Report Type: 
  Country: None (occurrence: None)
  Receive Date: 20100923
  Receipt Date: 20100609
  Transmission Date: 20110219
  Serious: No
  Sender: FDA-Public Use
  Company Number: US-BAUSCH-2010BL003123

PATIENT
  Age: 40 Year
  Sex: Female

DRUGS (3)
  1. BESIVANCE [Suspect]
     Indication: ULCERATIVE KERATITIS
     Route: 047
     Dates: start: 20100608, end: 20100609
  2. BESIVANCE [Suspect]
     Indication: OFF LABEL USE
     Route: 047
     Dates: start: 20100608, end: 20100609
  3. MULTI-VITAMINS [Concomitant]

REACTIONS (2)
  - DRUG HYPERSENSITIVITY [None]
  - INAPPROPRIATE SCHEDULE OF DRUG ADMINISTRATION [None]
